FAERS Safety Report 9107905 (Version 2)
Quarter: 2013Q1

REPORT INFORMATION
  Report Type: Report from Study
  Country: ES (occurrence: ES)
  Receive Date: 20130221
  Receipt Date: 20130327
  Transmission Date: 20140127
  Serious: Yes (Other)
  Sender: FDA-Public Use
  Company Number: ES-MERCK-1302ESP008782

PATIENT
  Age: 51 Year
  Sex: Male
  Weight: 65 kg

DRUGS (4)
  1. VICTRELIS [Suspect]
     Indication: CHRONIC HEPATITIS C
     Dosage: 800 MG, TID
     Route: 048
     Dates: start: 20120621, end: 20121221
  2. REBETOL [Suspect]
     Indication: CHRONIC HEPATITIS C
     Dosage: 800 MG, QD
     Route: 048
     Dates: start: 20120508, end: 20120521
  3. PEGINTERFERON ALFA-2A [Suspect]
     Indication: CHRONIC HEPATITIS C
     Dosage: 180 MICROGRAM, QW
     Route: 058
     Dates: start: 20120508, end: 20121221
  4. ACETAMINOPHEN [Concomitant]
     Dates: start: 20120508

REACTIONS (9)
  - Depressed mood [Recovered/Resolved]
  - Disturbance in attention [Recovered/Resolved]
  - Irritability [Recovered/Resolved]
  - Insomnia [Recovered/Resolved]
  - Dizziness [Recovered/Resolved]
  - Asthenia [Recovered/Resolved]
  - Visual acuity reduced [Recovered/Resolved]
  - Weight decreased [Recovered/Resolved]
  - Disturbance in attention [Recovered/Resolved]
